FAERS Safety Report 10467968 (Version 10)
Quarter: 2015Q1

REPORT INFORMATION
  Report Type: Spontaneous
  Country: SE (occurrence: SE)
  Receive Date: 20140922
  Receipt Date: 20150302
  Transmission Date: 20150720
  Serious: Yes (Hospitalization, Other)
  Sender: FDA-Public Use
  Company Number: SE-JNJFOC-20140914562

PATIENT
  Age: 72 Year
  Sex: Female
  Weight: 73 kg

DRUGS (3)
  1. OLYSIO [Suspect]
     Active Substance: SIMEPREVIR
     Indication: CHRONIC HEPATITIS C
     Route: 048
     Dates: start: 20140717, end: 20140912
  2. SOVALDI [Suspect]
     Active Substance: SOFOSBUVIR
     Indication: HEPATITIS C
     Route: 048
     Dates: start: 20140717, end: 20140912
  3. ENALAPRIL [Concomitant]
     Active Substance: ENALAPRIL

REACTIONS (8)
  - Blood bilirubin increased [Recovering/Resolving]
  - Fatigue [Recovered/Resolved]
  - Acute hepatic failure [Not Recovered/Not Resolved]
  - Hepatotoxicity [Not Recovered/Not Resolved]
  - Transaminases increased [Recovering/Resolving]
  - Perivascular dermatitis [Recovered/Resolved]
  - Abdominal pain upper [Recovered/Resolved]
  - Jaundice [Recovering/Resolving]

NARRATIVE: CASE EVENT DATE: 20140910
